FAERS Safety Report 9205099 (Version 1)
Quarter: 2013Q2

REPORT INFORMATION
  Report Type: Spontaneous
  Country: US (occurrence: None)
  Receive Date: 20130401
  Receipt Date: 20130401
  Transmission Date: 20140414
  Serious: Yes (Other)
  Sender: FDA-Public Use
  Company Number: None

PATIENT
  Age: 43 Year
  Sex: Female
  Weight: 56.7 kg

DRUGS (3)
  1. TYLENOL COLD [Suspect]
     Indication: SINUS HEADACHE
     Dosage: 1 CAPLET AS NEEDED PO
     Route: 048
     Dates: start: 20130329, end: 20130329
  2. TYLENOL COLD [Suspect]
     Indication: SNEEZING
     Dosage: 1 CAPLET AS NEEDED PO
     Route: 048
     Dates: start: 20130329, end: 20130329
  3. TYLENOL COLD [Suspect]
     Indication: RHINORRHOEA
     Dosage: 1 CAPLET AS NEEDED PO
     Route: 048
     Dates: start: 20130329, end: 20130329

REACTIONS (2)
  - Heart rate irregular [None]
  - Palpitations [None]
